FAERS Safety Report 8616824-0 (Version None)
Quarter: 2012Q3

REPORT INFORMATION
  Report Type: 
  Country: None (occurrence: None)
  Receive Date: 20120823
  Receipt Date: 20120809
  Transmission Date: 20120928
  Serious: Yes (Hospitalization, Other)
  Sender: FDA-Public Use
  Company Number: US-009507513-2009-194846-NL

PATIENT

DRUGS (2)
  1. IBUPROFEN [Concomitant]
     Indication: PRODUCT USED FOR UNKNOWN INDICATION
     Dosage: UNK UNK, PRN
  2. NUVARING [Suspect]
     Indication: CONTRACEPTION
     Dosage: DOSE TEXT: 3 WEEKS IN; 1 WEEK OUT, CONTINUING: NO
     Dates: start: 20020101, end: 20071004

REACTIONS (19)
  - MIGRAINE [None]
  - SLEEP DISORDER [None]
  - ABNORMAL BEHAVIOUR [None]
  - PULMONARY EMBOLISM [None]
  - DEEP VEIN THROMBOSIS [None]
  - TREATMENT NONCOMPLIANCE [None]
  - ANKLE FRACTURE [None]
  - PAIN IN EXTREMITY [None]
  - HEADACHE [None]
  - NAUSEA [None]
  - PSYCHIATRIC SYMPTOM [None]
  - DEPRESSED MOOD [None]
  - MEDICATION ERROR [None]
  - DEVICE EXPULSION [None]
  - VAGINITIS BACTERIAL [None]
  - MENTAL DISORDER [None]
  - UTERINE SPASM [None]
  - ABDOMINAL PAIN [None]
  - FRUSTRATION [None]
